FAERS Safety Report 4567675-8 (Version None)
Quarter: 2005Q1

REPORT INFORMATION
  Report Type: 
  Country: None (occurrence: None)
  Receive Date: 20050114
  Receipt Date: 20050114
  Transmission Date: 20050727
  Serious: No
  Sender: FDA-Public Use
  Company Number: None

PATIENT
  Sex: Male
  Weight: 118.3888 kg

DRUGS (7)
  1. DOXAZOSIN [Suspect]
     Indication: BENIGN PROSTATIC HYPERPLASIA
     Dosage: 8 MG QD
  2. NORVASC [Concomitant]
  3. FLOMAX [Concomitant]
  4. ADVAIR DISKUS 100/50 [Concomitant]
  5. HYDROCHLOROTHIAZIDE [Concomitant]
  6. ASPIRIN [Concomitant]
  7. PRILOSEC [Concomitant]

REACTIONS (4)
  - CONDITION AGGRAVATED [None]
  - NOCTURIA [None]
  - SOCIAL PROBLEM [None]
  - URINARY TRACT DISORDER [None]
